FAERS Safety Report 6967668-7 (Version None)
Quarter: 2010Q3

REPORT INFORMATION
  Report Type: 
  Country: None (occurrence: None)
  Receive Date: 20100907
  Receipt Date: 20100827
  Transmission Date: 20110219
  Serious: Yes (Disabling, Other)
  Sender: FDA-Public Use
  Company Number: US-PFIZER INC-2010077004

PATIENT
  Sex: Female

DRUGS (1)
  1. CHANTIX [Suspect]
     Indication: SMOKING CESSATION THERAPY
     Dosage: UNK
     Dates: start: 20080501

REACTIONS (7)
  - AGGRESSION [None]
  - ANXIETY [None]
  - DEPRESSION [None]
  - MENTAL DISORDER [None]
  - PANIC ATTACK [None]
  - SOCIAL AVOIDANT BEHAVIOUR [None]
  - SUICIDAL IDEATION [None]
